FAERS Safety Report 5924555-0 (Version None)
Quarter: 2008Q4

REPORT INFORMATION
  Report Type: 
  Country: None (occurrence: None)
  Receive Date: 20081020
  Receipt Date: 20081008
  Transmission Date: 20090506
  Serious: Yes (Hospitalization, Other)
  Sender: FDA-Public Use
  Company Number: DE-PFIZER INC-2008085393

PATIENT
  Age: 13 Year
  Sex: Male
  Weight: 50 kg

DRUGS (1)
  1. GENOTROPIN [Suspect]
     Indication: RENAL FAILURE CHRONIC
     Route: 058
     Dates: start: 20060408

REACTIONS (1)
  - EPIPHYSIOLYSIS [None]
